FAERS Safety Report 9286320 (Version 1)
Quarter: 2013Q2

REPORT INFORMATION
  Report Type: Spontaneous
  Country: US (occurrence: US)
  Receive Date: 20130513
  Receipt Date: 20130513
  Transmission Date: 20140414
  Serious: No
  Sender: FDA-Public Use
  Company Number: US-009507513-1305USA006835

PATIENT
  Age: 65 Year
  Sex: Male
  Weight: 73.47 kg

DRUGS (2)
  1. SYLATRON [Suspect]
     Indication: MALIGNANT MELANOMA
     Dosage: 216 MICROGRAM, QW
     Route: 058
     Dates: start: 20120807, end: 20130507
  2. SYLATRON [Suspect]
     Dosage: 192 MICROGRAM, QW
     Route: 058
     Dates: start: 20130507

REACTIONS (4)
  - Erythema [Unknown]
  - Rash generalised [Unknown]
  - Urticaria [Unknown]
  - Pruritus generalised [Unknown]
